FAERS Safety Report 12328915 (Version 2)
Quarter: 2016Q2

REPORT INFORMATION
  Report Type: Spontaneous
  Country: US (occurrence: US)
  Receive Date: 20160503
  Receipt Date: 20160506
  Transmission Date: 20160815
  Serious: Yes (Other)
  Sender: FDA-Public Use
  Company Number: US-PFIZER INC-2016236912

PATIENT
  Age: 54 Year
  Sex: Female

DRUGS (2)
  1. LYRICA [Suspect]
     Active Substance: PREGABALIN
     Indication: FIBROMYALGIA
     Dosage: 50 MG, UNK
     Dates: start: 200807
  2. LYRICA [Suspect]
     Active Substance: PREGABALIN
     Dosage: 100 MG, UNK

REACTIONS (11)
  - Pain in extremity [Unknown]
  - Dizziness [Unknown]
  - Insomnia [Recovering/Resolving]
  - Migraine [Unknown]
  - Dry mouth [Unknown]
  - Local swelling [Unknown]
  - Systemic lupus erythematosus [Unknown]
  - Agitation [Unknown]
  - Weight increased [Unknown]
  - Vertigo [Unknown]
  - Vertigo [Unknown]

NARRATIVE: CASE EVENT DATE: 200810
